FAERS Safety Report 15220599 (Version 1)
Quarter: 2018Q4

REPORT INFORMATION
  Report Type: Spontaneous
  Country: JP (occurrence: JP)
  Receive Date: 20180731
  Receipt Date: 20180731
  Transmission Date: 20190204
  Serious: Yes (Life-Threatening, Hospitalization)
  Sender: FDA-Public Use
  Company Number: JP-TAIHO ONCOLOGY  INC-JPTT180414

PATIENT
  Age: 75 Year
  Sex: Female
  Weight: 40 kg

DRUGS (5)
  1. BIO-THREE OD [Concomitant]
     Dosage: DETAILS NOT REPORTED
     Route: 048
  2. LONSURF [Suspect]
     Active Substance: TIPIRACIL HYDROCHLORIDE\TRIFLURIDINE
     Indication: COLON CANCER METASTATIC
     Dosage: DOSE NOT REPORTED, ON DAYS 1-5 AND 8-12 OF EACH 28-DAY CYCLE, CYCLES 1-2
     Route: 048
     Dates: start: 20170926
  3. FERROUS SULFATE. [Concomitant]
     Active Substance: FERROUS SULFATE
     Dosage: DETAILS NOT REPORTED
     Route: 048
  4. NIFEDIPINE CR [Concomitant]
     Active Substance: NIFEDIPINE
     Dosage: DETAILS NOT REPORTED
     Route: 048
  5. TSUMURA KEISHIKAJUTSUBUTO EXTRACT GRANULES FOR ETHICAL US [Suspect]
     Active Substance: HERBALS
     Indication: NEUROPATHY PERIPHERAL
     Route: 048
     Dates: start: 20170404

REACTIONS (2)
  - Lung disorder [Recovering/Resolving]
  - Anaemia [Unknown]

NARRATIVE: CASE EVENT DATE: 20171124
